FAERS Safety Report 16132124 (Version 4)
Quarter: 2019Q1

REPORT INFORMATION
  Report Type: Spontaneous
  Country: CA (occurrence: CA)
  Receive Date: 20190329
  Receipt Date: 20190330
  Transmission Date: 20190418
  Serious: Yes (Life-Threatening, Hospitalization, Other)
  Sender: FDA-Public Use
  Company Number: CA-ACCORD-116505

PATIENT
  Age: 74 Year
  Sex: Male

DRUGS (3)
  1. METHOTREXATE. [Suspect]
     Active Substance: METHOTREXATE
     Indication: RHEUMATOID ARTHRITIS
  2. PREDNISONE. [Concomitant]
     Active Substance: PREDNISONE
     Dosage: LOW DOSE PREDNISONE
  3. HYDROXYCHLOROQUINE [Concomitant]
     Active Substance: HYDROXYCHLOROQUINE
     Indication: RHEUMATOID ARTHRITIS

REACTIONS (4)
  - Treatment failure [Unknown]
  - Meningitis [Recovered/Resolved with Sequelae]
  - Parkinsonism [Recovered/Resolved with Sequelae]
  - Rheumatoid nodule [Recovered/Resolved with Sequelae]
